FAERS Safety Report 7265996-1 (Version None)
Quarter: 2011Q1

REPORT INFORMATION
  Report Type: 
  Country: None (occurrence: None)
  Receive Date: 20110131
  Receipt Date: 20110120
  Transmission Date: 20110831
  Serious: Yes (Other)
  Sender: FDA-Public Use
  Company Number: US-ASTRAZENECA-2011SE03626

PATIENT
  Age: 71 Year
  Sex: Female

DRUGS (2)
  1. ATACAND [Suspect]
     Route: 048
  2. ATACAND [Suspect]
     Route: 048

REACTIONS (3)
  - SURGERY [None]
  - RENAL DISORDER [None]
  - MALIGNANT MELANOMA [None]
